FAERS Safety Report 5484892-3 (Version None)
Quarter: 2007Q4

REPORT INFORMATION
  Report Type: 
  Country: None (occurrence: None)
  Receive Date: 20071010
  Receipt Date: 20071003
  Transmission Date: 20080405
  Serious: Yes (Other)
  Sender: FDA-Public Use
  Company Number: 2007332347

PATIENT
  Age: 17 Year
  Sex: Female

DRUGS (2)
  1. NON-DROWSY SUDAFED DUAL RELIEF MAX (PSEUDOEPHEDRINE, IBUPROFEN) [Suspect]
     Indication: NASOPHARYNGITIS
     Dosage: 2 TABLETS (60 MG), ORAL
     Route: 048
     Dates: start: 20071003
  2. SUDAFED 12 HOUR [Suspect]
     Indication: NASOPHARYNGITIS
     Dosage: 2 TABLETS (120 MG), ORAL
     Route: 048
     Dates: start: 20071003

REACTIONS (3)
  - FEELING HOT [None]
  - INCORRECT DOSE ADMINISTERED [None]
  - MALAISE [None]
